FAERS Safety Report 26066016 (Version 1)
Quarter: 2025Q4

REPORT INFORMATION
  Report Type: Spontaneous
  Country: US (occurrence: US)
  Receive Date: 20251119
  Receipt Date: 20251119
  Transmission Date: 20260118
  Serious: Yes (Hospitalization)
  Sender: TG THERAPEUTICS
  Company Number: US-TG THERAPEUTICS INC.-TGT006343

PATIENT

DRUGS (3)
  1. BRIUMVI [Suspect]
     Active Substance: UBLITUXIMAB-XIIY
     Indication: Relapsing multiple sclerosis
     Dosage: 150 MILLIGRAM
     Route: 042
     Dates: start: 20230904, end: 20230904
  2. BRIUMVI [Suspect]
     Active Substance: UBLITUXIMAB-XIIY
     Dosage: 450 MILLIGRAM
     Route: 042
     Dates: start: 20250219, end: 20250219
  3. FERROUS GLUCONATE [Concomitant]
     Active Substance: FERROUS GLUCONATE
     Indication: Anaemia
     Dosage: 324 MILLIGRAM, QD
     Route: 048
     Dates: start: 20251009

REACTIONS (4)
  - Pneumonia mycoplasmal [Recovered/Resolved]
  - Sepsis [Recovered/Resolved]
  - Skin infection [Recovered/Resolved]
  - Hypoglobulinaemia [Not Recovered/Not Resolved]

NARRATIVE: CASE EVENT DATE: 20250811
